FAERS Safety Report 5519921-1 (Version None)
Quarter: 2007Q4

REPORT INFORMATION
  Report Type: 
  Country: None (occurrence: None)
  Receive Date: 20071116
  Receipt Date: 20071109
  Transmission Date: 20080405
  Serious: Yes (Life-Threatening, Other)
  Sender: FDA-Public Use
  Company Number: JP-ABBOTT-07P-087-0423386-00

PATIENT
  Sex: Male
  Weight: 63 kg

DRUGS (8)
  1. SEVOFLURANE [Suspect]
     Indication: INDUCTION OF ANAESTHESIA
     Route: 055
     Dates: start: 20070402, end: 20070402
  2. SEVOFLURANE [Suspect]
     Indication: MAINTENANCE OF ANAESTHESIA
     Route: 055
     Dates: start: 20070402, end: 20070402
  3. REMIFENTANIL HYDROCHLORIDE [Suspect]
     Indication: INDUCTION OF ANAESTHESIA
     Dosage: 3 MG/HR EVERY DAY
     Route: 042
     Dates: start: 20070402, end: 20070402
  4. REMIFENTANIL HYDROCHLORIDE [Suspect]
     Indication: MAINTENANCE OF ANAESTHESIA
     Dosage: 0.75 MG/HR EVERY DAY
     Dates: start: 20070402, end: 20070402
  5. FENTANYL [Suspect]
     Indication: INDUCTION OF ANAESTHESIA
     Route: 042
     Dates: start: 20070402, end: 20070402
  6. PROPOFOL [Suspect]
     Indication: INDUCTION OF ANAESTHESIA
     Route: 042
     Dates: start: 20070402, end: 20070402
  7. PYRIDOSTIGMINE BROMIDE [Concomitant]
     Indication: DRUG USE FOR UNKNOWN INDICATION
     Route: 048
  8. LIDOCAINE [Concomitant]
     Indication: EPIDURAL TEST DOSE
     Dosage: 4 ML
     Dates: start: 20070402, end: 20070402

REACTIONS (2)
  - BRADYCARDIA [None]
  - CARDIAC ARREST [None]
